FAERS Safety Report 16148231 (Version 1)
Quarter: 2019Q2

REPORT INFORMATION
  Report Type: Spontaneous
  Country: US (occurrence: US)
  Receive Date: 20190402
  Receipt Date: 20190402
  Transmission Date: 20190711
  Serious: Yes (Hospitalization)
  Sender: FDA-Public Use
  Company Number: US-BECTON DICKINSON-2019BDN00134

PATIENT
  Age: 41 Year
  Sex: Female

DRUGS (3)
  1. CHLORHEXIDINE [Suspect]
     Active Substance: CHLORHEXIDINE
     Indication: ANTIBIOTIC PROPHYLAXIS
     Route: 061
  2. BACITRACIN. [Concomitant]
     Active Substance: BACITRACIN
     Route: 065
  3. CEFAZOLIN [Concomitant]
     Active Substance: CEFAZOLIN
     Route: 042

REACTIONS (3)
  - Extradural abscess [Unknown]
  - Postoperative wound infection [Unknown]
  - Medical device removal [Recovered/Resolved]
